FAERS Safety Report 20709467 (Version 1)
Quarter: 2022Q2

REPORT INFORMATION
  Report Type: Spontaneous
  Country: FR (occurrence: FR)
  Receive Date: 20220414
  Receipt Date: 20220414
  Transmission Date: 20220721
  Serious: Yes (Other)
  Sender: FDA-Public Use
  Company Number: FR-MYLANLABS-2022M1027043

PATIENT
  Age: 76 Year
  Sex: Female

DRUGS (1)
  1. PREDNISONE [Suspect]
     Active Substance: PREDNISONE
     Indication: Arthralgia
     Dosage: 20 MILLIGRAM (1 DAILY FOR 2 DAYS)

REACTIONS (6)
  - Deep vein thrombosis [Unknown]
  - Embolism [Unknown]
  - Dyspnoea [Recovered/Resolved]
  - Malaise [Unknown]
  - Tachycardia [Unknown]
  - Hypertension [Recovering/Resolving]
